FAERS Safety Report 20758001 (Version 1)
Quarter: 2022Q2

REPORT INFORMATION
  Report Type: Spontaneous
  Country: US (occurrence: US)
  Receive Date: 20220427
  Receipt Date: 20220427
  Transmission Date: 20220721
  Serious: No
  Sender: FDA-Public Use
  Company Number: US-TEVA-2022-US-2024019

PATIENT
  Age: 57 Year
  Sex: Male

DRUGS (2)
  1. CLONAZEPAM [Suspect]
     Active Substance: CLONAZEPAM
     Indication: Bipolar disorder
     Route: 065
  2. CLONAZEPAM [Suspect]
     Active Substance: CLONAZEPAM
     Indication: Anxiety

REACTIONS (17)
  - Product quality issue [Unknown]
  - Drug ineffective [Unknown]
  - Adverse event [Unknown]
  - Muscle spasms [Unknown]
  - Hyperhidrosis [Unknown]
  - Muscle rigidity [Unknown]
  - Trismus [Unknown]
  - Decreased appetite [Unknown]
  - Confusional state [Unknown]
  - Anxiety [Unknown]
  - Decreased vibratory sense [Unknown]
  - Tremor [Unknown]
  - Nausea [Unknown]
  - Muscular weakness [Unknown]
  - Impaired driving ability [Unknown]
  - Thinking abnormal [Unknown]
  - Product use in unapproved indication [Unknown]

NARRATIVE: CASE EVENT DATE: 20220101
